FAERS Safety Report 25747678 (Version 1)
Quarter: 2025Q3

REPORT INFORMATION
  Report Type: Spontaneous
  Country: CA (occurrence: CA)
  Receive Date: 20250901
  Receipt Date: 20250901
  Transmission Date: 20251020
  Serious: Yes (Other)
  Sender: NOVARTIS
  Company Number: CA-002147023-NVSC2025CA134251

PATIENT
  Age: 49 Year
  Sex: Female

DRUGS (9)
  1. KISQALI [Suspect]
     Active Substance: RIBOCICLIB SUCCINATE
     Indication: Breast cancer metastatic
     Route: 065
  2. LETROZOLE [Suspect]
     Active Substance: LETROZOLE
     Indication: Breast cancer metastatic
     Dosage: 2.5 MG, QD
     Route: 048
  3. LETROZOLE [Suspect]
     Active Substance: LETROZOLE
     Dosage: 2.5 MG, QD
     Route: 048
  4. ZOMETA [Suspect]
     Active Substance: ZOLEDRONIC ACID
     Indication: Breast cancer metastatic
     Route: 042
  5. GOSERELIN ACETATE [Suspect]
     Active Substance: GOSERELIN ACETATE
     Indication: Breast cancer metastatic
     Route: 058
  6. GOSERELIN ACETATE [Suspect]
     Active Substance: GOSERELIN ACETATE
     Route: 065
  7. TAMOXIFEN [Suspect]
     Active Substance: TAMOXIFEN
     Indication: Breast cancer metastatic
     Route: 048
  8. TAMOXIFEN [Suspect]
     Active Substance: TAMOXIFEN
     Route: 048
  9. GOSERELIN [Suspect]
     Active Substance: GOSERELIN
     Indication: Product used for unknown indication
     Route: 058

REACTIONS (11)
  - Breast cancer metastatic [Unknown]
  - Malignant neoplasm progression [Unknown]
  - Deep vein thrombosis [Unknown]
  - Gastrointestinal disorder [Unknown]
  - Herpes zoster [Unknown]
  - Menstruation irregular [Unknown]
  - Metastases to bone [Unknown]
  - Metastases to pelvis [Unknown]
  - Pain [Unknown]
  - Skin burning sensation [Unknown]
  - Skin fragility [Unknown]
